FAERS Safety Report 6446558-2 (Version None)
Quarter: 2009Q4

REPORT INFORMATION
  Report Type: 
  Country: None (occurrence: None)
  Receive Date: 20091116
  Receipt Date: 20091104
  Transmission Date: 20100525
  Serious: Yes (Hospitalization)
  Sender: FDA-Public Use
  Company Number: 2009011351

PATIENT
  Sex: Female

DRUGS (1)
  1. ACTIQ [Suspect]
     Indication: BREAST CANCER
     Dosage: (1200 MCG, UP TO 8 DOSES PER DAY), BU
     Route: 002

REACTIONS (12)
  - CONDITION AGGRAVATED [None]
  - DRUG PRESCRIBING ERROR [None]
  - ECONOMIC PROBLEM [None]
  - GASTRIC HAEMORRHAGE [None]
  - LOSS OF CONSCIOUSNESS [None]
  - MASTICATION DISORDER [None]
  - MUSCLE SPASMS [None]
  - PAIN [None]
  - TEMPOROMANDIBULAR JOINT SYNDROME [None]
  - TOOTH ABSCESS [None]
  - TOOTH FRACTURE [None]
  - TOOTH LOSS [None]
